FAERS Safety Report 25471203 (Version 1)
Quarter: 2025Q2

REPORT INFORMATION
  Report Type: Spontaneous
  Country: US (occurrence: US)
  Receive Date: 20250624
  Receipt Date: 20250624
  Transmission Date: 20250716
  Serious: No
  Sender: LUPIN
  Company Number: US-LUPIN PHARMACEUTICALS INC.-2025-05124

PATIENT

DRUGS (1)
  1. ALBUTEROL SULFATE [Suspect]
     Active Substance: ALBUTEROL SULFATE
     Indication: Asthma
     Dosage: BID (2 PUFFS TWICE A DAY)

REACTIONS (4)
  - Dyspnoea [Unknown]
  - Asthma [Unknown]
  - Wrong technique in product usage process [Unknown]
  - Product communication issue [Unknown]
